FAERS Safety Report 23030819 (Version 1)
Quarter: 2023Q4

REPORT INFORMATION
  Report Type: Spontaneous
  Country: US (occurrence: US)
  Receive Date: 20231005
  Receipt Date: 20231005
  Transmission Date: 20240110
  Serious: Yes (Hospitalization, Other)
  Sender: FDA-Public Use
  Company Number: US-CADILA HEALTHCARE LIMITED-US-ZYDUS-098428

PATIENT

DRUGS (1)
  1. TIZANIDINE HYDROCHLORIDE [Suspect]
     Active Substance: TIZANIDINE HYDROCHLORIDE
     Indication: Back pain
     Dosage: 30 MILLIGRAM, QD
     Route: 065

REACTIONS (10)
  - Mental status changes [Unknown]
  - Agitation [Recovering/Resolving]
  - Acute kidney injury [Recovering/Resolving]
  - Acute myocardial infarction [Recovering/Resolving]
  - Hyperhidrosis [Recovering/Resolving]
  - Anxiety [Recovering/Resolving]
  - Tachycardia [Recovering/Resolving]
  - Hypertensive emergency [Unknown]
  - Drug withdrawal syndrome [Recovering/Resolving]
  - Intentional product misuse [Unknown]
